FAERS Safety Report 23469895 (Version 1)
Quarter: 2024Q1

REPORT INFORMATION
  Report Type: Spontaneous
  Country: US (occurrence: None)
  Receive Date: 20240202
  Receipt Date: 20240202
  Transmission Date: 20240409
  Serious: Yes (Hospitalization)
  Sender: FDA-Public Use
  Company Number: None

PATIENT
  Age: 87 Year
  Sex: Male
  Weight: 117.3 kg

DRUGS (13)
  1. FLUOROURACIL [Suspect]
     Active Substance: FLUOROURACIL
     Dates: end: 20231109
  2. GEMCITABINE HYDROCHLORIDE [Suspect]
     Dates: end: 20231226
  3. ONIVYDE [Suspect]
     Active Substance: IRINOTECAN HYDROCHLORIDE
     Dates: end: 20231109
  4. LEUCOVORIN CALCIUM [Suspect]
     Dates: end: 20231109
  5. PACLITAXEL PROTEIN BOUND PARTICLES ALBUMIN BOUND [Suspect]
     Active Substance: PACLITAXEL
     Dates: end: 20231226
  6. ABRAXANE [Concomitant]
  7. ASPIRIN [Concomitant]
  8. DEXAMETHASONE [Concomitant]
  9. FINASTERIDE [Concomitant]
  10. GEMCITABINE [Concomitant]
  11. LASIX [Concomitant]
     Active Substance: FUROSEMIDE
  12. POTASSIUM CHLORIDE [Concomitant]
  13. TRAMADOL [Concomitant]

REACTIONS (14)
  - Fall [None]
  - Asthenia [None]
  - Hypoxia [None]
  - Pulmonary embolism [None]
  - Acute respiratory failure [None]
  - Respiratory syncytial virus infection [None]
  - Bronchiolitis [None]
  - Dyspnoea [None]
  - Hypokalaemia [None]
  - Hypocalcaemia [None]
  - Disease progression [None]
  - Atelectasis [None]
  - Pleural effusion [None]
  - Mental status changes [None]

NARRATIVE: CASE EVENT DATE: 20231221
